FAERS Safety Report 6477833-3 (Version None)
Quarter: 2009Q4

REPORT INFORMATION
  Report Type: 
  Country: None (occurrence: None)
  Receive Date: 20091207
  Receipt Date: 20091201
  Transmission Date: 20100525
  Serious: Yes (Hospitalization)
  Sender: FDA-Public Use
  Company Number: US-JNJFOC-20091101647

PATIENT
  Sex: Male
  Weight: 57.61 kg

DRUGS (8)
  1. DURAGESIC-100 [Suspect]
     Route: 062
     Dates: end: 20091201
  2. DURAGESIC-100 [Suspect]
     Route: 062
     Dates: end: 20091201
  3. DURAGESIC-100 [Suspect]
     Indication: ARTHRITIS
     Route: 062
     Dates: end: 20091201
  4. DURAGESIC-100 [Suspect]
     Indication: PAIN
     Route: 062
     Dates: start: 20091201
  5. OXYCODONE HCL [Concomitant]
     Indication: PAIN
     Dosage: 10/650 MG
     Route: 048
  6. LEXAPRO [Concomitant]
     Indication: DEPRESSION
     Route: 048
  7. XANAX [Concomitant]
     Indication: DEPRESSION
     Route: 048
  8. MIRALAX [Concomitant]
     Indication: FREQUENT BOWEL MOVEMENTS
     Route: 048

REACTIONS (7)
  - INAPPROPRIATE SCHEDULE OF DRUG ADMINISTRATION [None]
  - INSOMNIA [None]
  - MUSCLE SPASMS [None]
  - OSTEOARTHRITIS [None]
  - PRODUCT QUALITY ISSUE [None]
  - THERAPEUTIC RESPONSE DECREASED [None]
  - WITHDRAWAL SYNDROME [None]
